FAERS Safety Report 4761486-6 (Version None)
Quarter: 2005Q3

REPORT INFORMATION
  Report Type: 
  Country: None (occurrence: None)
  Receive Date: 20050906
  Receipt Date: 20050824
  Transmission Date: 20060218
  Serious: Yes (Other)
  Sender: FDA-Public Use
  Company Number: CA-GLAXOSMITHKLINE-A0572452A

PATIENT
  Age: 32 Year
  Sex: Female

DRUGS (1)
  1. DEXEDRINE [Suspect]
     Indication: ATTENTION DEFICIT/HYPERACTIVITY DISORDER
     Route: 048
     Dates: start: 20050801

REACTIONS (6)
  - ASTHMA [None]
  - DRUG ADMINISTRATION ERROR [None]
  - DYSPNOEA [None]
  - ERYTHEMA [None]
  - LOCAL SWELLING [None]
  - MALAISE [None]
